FAERS Safety Report 9395608 (Version 1)
Quarter: 2013Q3

REPORT INFORMATION
  Report Type: Spontaneous
  Country: US (occurrence: US)
  Receive Date: 20130709
  Receipt Date: 20130709
  Transmission Date: 20140515
  Serious: Yes (Other)
  Sender: FDA-Public Use
  Company Number: CHPA2013US010760

PATIENT
  Age: 80 Year
  Sex: Female

DRUGS (2)
  1. LAMISILK PROTECT O/N MOISTURE SEAL [Suspect]
     Indication: THERAPEUTIC SKIN CARE TOPICAL
     Dosage: UNK, UNK
     Route: 061
  2. GAS-X UNKNOWN [Suspect]
     Dosage: UNK, UNK
     Route: 048

REACTIONS (3)
  - Transient ischaemic attack [Unknown]
  - Atrial fibrillation [Unknown]
  - Product expiration date issue [None]
